FAERS Safety Report 19983711 (Version 1)
Quarter: 2021Q4

REPORT INFORMATION
  Report Type: Spontaneous
  Country: US (occurrence: US)
  Receive Date: 20211022
  Receipt Date: 20211022
  Transmission Date: 20220303
  Serious: Yes (Other)
  Sender: FDA-Public Use
  Company Number: US-INDOCO-000246

PATIENT
  Age: 62 Year
  Sex: Male

DRUGS (6)
  1. APIXABAN [Suspect]
     Active Substance: APIXABAN
     Indication: Anticoagulant therapy
     Dosage: 5 MG TWICE DAILY
  2. RIVAROXABAN [Suspect]
     Active Substance: RIVAROXABAN
     Indication: Anticoagulant therapy
     Dosage: 10 MG BY MOUTH DAILY
     Route: 048
  3. CEFAZOLIN [Concomitant]
     Active Substance: CEFAZOLIN
     Dosage: IV THREE TIMES DAILY
     Route: 042
  4. ENOXAPARIN [Concomitant]
     Active Substance: ENOXAPARIN
     Route: 058
  5. INSULIN NOS [Concomitant]
     Active Substance: INSULIN NOS
  6. METRONIDAZOLE [Concomitant]
     Active Substance: METRONIDAZOLE
     Route: 048

REACTIONS (2)
  - Rash pruritic [Recovered/Resolved]
  - Drug hypersensitivity [Recovered/Resolved]
